FAERS Safety Report 14407193 (Version 2)
Quarter: 2018Q1

REPORT INFORMATION
  Report Type: Spontaneous
  Country: US (occurrence: US)
  Receive Date: 20180118
  Receipt Date: 20180126
  Transmission Date: 20180509
  Serious: Yes (Other)
  Sender: FDA-Public Use
  Company Number: US-CELGENEUS-USA-20180105884

PATIENT
  Age: 40 Year
  Sex: Female

DRUGS (3)
  1. CLOBEX [Concomitant]
     Active Substance: CLOBETASOL PROPIONATE
     Indication: SEBORRHOEIC DERMATITIS
     Route: 065
  2. OTEZLA [Suspect]
     Active Substance: APREMILAST
     Indication: SEBORRHOEIC DERMATITIS
     Dosage: 60 MILLIGRAM
     Route: 048
     Dates: start: 20180111, end: 20180115
  3. SELRX [Concomitant]
     Active Substance: SELENIUM SULFIDE
     Indication: SEBORRHOEIC DERMATITIS
     Route: 065

REACTIONS (2)
  - Nausea [Recovered/Resolved]
  - Vomiting [Recovered/Resolved]

NARRATIVE: CASE EVENT DATE: 20180115
